FAERS Safety Report 5659669-6 (Version None)
Quarter: 2008Q1

REPORT INFORMATION
  Report Type: 
  Country: None (occurrence: None)
  Receive Date: 20080311
  Receipt Date: 20080229
  Transmission Date: 20080703
  Serious: Yes (Hospitalization, Other)
  Sender: FDA-Public Use
  Company Number: US-JNJFOC-20080300130

PATIENT
  Sex: Female
  Weight: 61.24 kg

DRUGS (7)
  1. DURAGESIC-100 [Suspect]
     Indication: BACK PAIN
     Route: 062
  2. LYRICA [Suspect]
     Indication: FIBROMYALGIA
     Route: 048
  3. VERAPAMIL [Concomitant]
     Indication: BLOOD PRESSURE
     Route: 048
  4. ZYRTEC [Concomitant]
     Indication: SEASONAL ALLERGY
     Route: 048
  5. LASIX [Concomitant]
     Indication: FLUID RETENTION
     Route: 048
  6. VICODIN ES [Concomitant]
     Indication: BACK PAIN
     Dosage: AS NEEDED
     Route: 048
  7. STARLIX [Concomitant]
     Indication: DIABETES MELLITUS
     Route: 048

REACTIONS (23)
  - ANXIETY [None]
  - BIPOLAR DISORDER [None]
  - DRY SKIN [None]
  - DYSPNOEA [None]
  - FIBROMYALGIA [None]
  - GASTRIC ULCER HAEMORRHAGE [None]
  - GASTRIC ULCER PERFORATION [None]
  - INSOMNIA [None]
  - JOINT SPRAIN [None]
  - LIMB INJURY [None]
  - MENTAL DISORDER [None]
  - MIGRAINE [None]
  - MITRAL VALVE PROLAPSE [None]
  - MUSCLE SPASMS [None]
  - PHARMACEUTICAL PRODUCT COMPLAINT [None]
  - PNEUMONIA PRIMARY ATYPICAL [None]
  - SKIN CHAPPED [None]
  - SOMNOLENCE [None]
  - TACHYCARDIA [None]
  - TENDON OPERATION [None]
  - VERTIGO [None]
  - VOMITING [None]
  - WRONG TECHNIQUE IN DRUG USAGE PROCESS [None]
